FAERS Safety Report 17996396 (Version 1)
Quarter: 2020Q3

REPORT INFORMATION
  Report Type: Spontaneous
  Country: CA (occurrence: CA)
  Receive Date: 20200708
  Receipt Date: 20200708
  Transmission Date: 20201103
  Serious: Yes (Life-Threatening, Hospitalization)
  Sender: FDA-Public Use
  Company Number: CA-TEVA-2020-CA-1797227

PATIENT
  Age: 17 Year
  Sex: Female
  Weight: 56 kg

DRUGS (31)
  1. BLEOMYCIN SULPHATE FOR INJECTION USP [Suspect]
     Active Substance: BLEOMYCIN SULFATE
     Route: 042
  2. ACETAMINOPHEN. [Concomitant]
     Active Substance: ACETAMINOPHEN
  3. EMEND [Concomitant]
     Active Substance: APREPITANT
  4. HYDROMORPHONE [Concomitant]
     Active Substance: HYDROMORPHONE
  5. NAPROXEN. [Concomitant]
     Active Substance: NAPROXEN
  6. SULFAMETHOXAZOLE AND TRIMETHOPRIM [Concomitant]
     Active Substance: SULFAMETHOXAZOLE\TRIMETHOPRIM
  7. ETOPOSIDE. [Suspect]
     Active Substance: ETOPOSIDE
     Indication: OVARIAN GERM CELL TERATOMA STAGE III
     Dosage: 160 MILLIGRAM DAILY;
     Route: 042
  8. CETIRIZINE [Concomitant]
     Active Substance: CETIRIZINE HYDROCHLORIDE
  9. DIMENHYDRINATE. [Concomitant]
     Active Substance: DIMENHYDRINATE
  10. METOCLOPRAMIDE. [Concomitant]
     Active Substance: METOCLOPRAMIDE
  11. DIPHENHYDRAMINE. [Concomitant]
     Active Substance: DIPHENHYDRAMINE
  12. GRANISETRON [Concomitant]
     Active Substance: GRANISETRON
  13. VANCOMYCIN [Concomitant]
     Active Substance: VANCOMYCIN
  14. CLONIDINE. [Concomitant]
     Active Substance: CLONIDINE
  15. LORAZEPAM. [Concomitant]
     Active Substance: LORAZEPAM
  16. PANTOPRAZOLE [Concomitant]
     Active Substance: PANTOPRAZOLE
  17. ENOXAPARIN [Concomitant]
     Active Substance: ENOXAPARIN
  18. FUROSEMIDE. [Concomitant]
     Active Substance: FUROSEMIDE
  19. ONDANSETRON [Concomitant]
     Active Substance: ONDANSETRON
  20. ZINC. [Concomitant]
     Active Substance: ZINC
  21. CISPLATIN INJECTION [Suspect]
     Active Substance: CISPLATIN
     Indication: OVARIAN GERM CELL TERATOMA STAGE III
     Dosage: 32 MILLIGRAM DAILY;
     Route: 042
  22. DEXAMETHASONE. [Concomitant]
     Active Substance: DEXAMETHASONE
  23. MAGNESIUM [Concomitant]
     Active Substance: MAGNESIUM
  24. ALLOPURINOL. [Concomitant]
     Active Substance: ALLOPURINOL
  25. NORETHINDRONE. [Concomitant]
     Active Substance: NORETHINDRONE
  26. POLYETHYLENE GLYCOL [Concomitant]
     Active Substance: POLYETHYLENE GLYCOLS
  27. RANITIDINE. [Concomitant]
     Active Substance: RANITIDINE
  28. CALCIUM [Concomitant]
     Active Substance: CALCIUM
  29. CHLORURE DE POTASSIUM H5? TABLETS [Concomitant]
  30. KETAMINE (UNKNOWN) [Concomitant]
     Active Substance: KETAMINE
  31. PREGABALIN. [Concomitant]
     Active Substance: PREGABALIN

REACTIONS (3)
  - Pancytopenia [Recovered/Resolved]
  - Transfusion [Recovered/Resolved]
  - Febrile neutropenia [Recovered/Resolved]
